FAERS Safety Report 5511107-X (Version None)
Quarter: 2007Q4

REPORT INFORMATION
  Report Type: 
  Country: None (occurrence: None)
  Receive Date: 20071109
  Receipt Date: 20071106
  Transmission Date: 20080405
  Serious: Yes (Death)
  Sender: FDA-Public Use
  Company Number: JP-AVENTIS-200713018JP

PATIENT
  Age: 84 Year
  Sex: Male

DRUGS (3)
  1. TAXOTERE [Suspect]
     Route: 041
  2. GEMZAR [Suspect]
  3. ZOMETA [Concomitant]

REACTIONS (1)
  - INTERSTITIAL LUNG DISEASE [None]
